FAERS Safety Report 6105669-1 (Version None)
Quarter: 2009Q1

REPORT INFORMATION
  Report Type: 
  Country: None (occurrence: None)
  Receive Date: 20090304
  Receipt Date: 20090304
  Transmission Date: 20090719
  Serious: Yes (Other)
  Sender: FDA-Public Use
  Company Number: None

PATIENT
  Sex: Female
  Weight: 40.6196 kg

DRUGS (2)
  1. NEURONTIN [Suspect]
     Dosage: 100MG CAPSULE 300 MG TID ORAL
     Route: 048
     Dates: start: 20090127, end: 20090303
  2. LIDOCAINE [Concomitant]

REACTIONS (1)
  - CONSTIPATION [None]
